FAERS Safety Report 6738021-6 (Version None)
Quarter: 2010Q2

REPORT INFORMATION
  Report Type: 
  Country: None (occurrence: None)
  Receive Date: 20100517
  Receipt Date: 20100511
  Transmission Date: 20101027
  Serious: Yes (Other)
  Sender: FDA-Public Use
  Company Number: 2010BM000114

PATIENT
  Age: 4 Year
  Sex: Female

DRUGS (1)
  1. NAGLAZYME [Suspect]
     Indication: MUCOPOLYSACCHARIDOSIS VI
     Dosage: 3 VIALS; QW; IVDRP
     Dates: start: 20090415

REACTIONS (1)
  - SPINAL OPERATION [None]
